FAERS Safety Report 5902279-3 (Version None)
Quarter: 2008Q3

REPORT INFORMATION
  Report Type: 
  Country: None (occurrence: None)
  Receive Date: 20080929
  Receipt Date: 20080708
  Transmission Date: 20090109
  Serious: No
  Sender: FDA-Public Use
  Company Number: US-BAUSCH-2008BL003009

PATIENT
  Age: 65 Year
  Sex: Male

DRUGS (2)
  1. ALAWAY [Suspect]
     Indication: EYE ALLERGY
     Route: 047
     Dates: start: 20080706
  2. GENTEAL [Concomitant]

REACTIONS (1)
  - EYE PAIN [None]
